FAERS Safety Report 6172806-2 (Version None)
Quarter: 2009Q2

REPORT INFORMATION
  Report Type: 
  Country: None (occurrence: None)
  Receive Date: 20090428
  Receipt Date: 20090414
  Transmission Date: 20091009
  Serious: Yes (Hospitalization)
  Sender: FDA-Public Use
  Company Number: 8044913

PATIENT
  Sex: Female

DRUGS (1)
  1. KEPPRA [Suspect]

REACTIONS (6)
  - GINGIVITIS [None]
  - LETHARGY [None]
  - PERIORBITAL OEDEMA [None]
  - RENAL PAIN [None]
  - SKIN HYPERPIGMENTATION [None]
  - WEIGHT DECREASED [None]
